FAERS Safety Report 18657213 (Version 1)
Quarter: 2020Q4

REPORT INFORMATION
  Report Type: Report from Study
  Country: None (occurrence: US)
  Receive Date: 20201224
  Receipt Date: 20201224
  Transmission Date: 20210114
  Serious: Yes (Hospitalization)
  Sender: FDA-Public Use
  Company Number: US-ABBVIE-20K-163-3680364-00

PATIENT
  Age: 43 Year
  Sex: Female

DRUGS (1)
  1. SKYRIZI [Suspect]
     Active Substance: RISANKIZUMAB-RZAA
     Indication: PSORIASIS
     Route: 058

REACTIONS (8)
  - Oxygen saturation decreased [Recovered/Resolved]
  - Dizziness [Unknown]
  - Cough [Unknown]
  - Sinus congestion [Unknown]
  - Pyrexia [Unknown]
  - Paranasal sinus discomfort [Unknown]
  - Dyspnoea [Recovering/Resolving]
  - SARS-CoV-2 test positive [Recovering/Resolving]

NARRATIVE: CASE EVENT DATE: 202012
